FAERS Safety Report 5291960-8 (Version None)
Quarter: 2007Q2

REPORT INFORMATION
  Report Type: 
  Country: None (occurrence: None)
  Receive Date: 20070406
  Receipt Date: 20070406
  Transmission Date: 20071010
  Serious: No
  Sender: FDA-Public Use
  Company Number: None

PATIENT
  Age: 46 Year
  Sex: Female
  Weight: 90.7194 kg

DRUGS (1)
  1. ALPRAZOLAM [Suspect]
     Indication: SLEEP APNOEA SYNDROME
     Dosage: 2MG 1BID BEOFRE SLEEP PO
     Route: 048
     Dates: start: 20050101, end: 20070215

REACTIONS (2)
  - DRUG EFFECT DECREASED [None]
  - PHARMACEUTICAL PRODUCT COMPLAINT [None]
